FAERS Safety Report 9890294 (Version 2)
Quarter: 2014Q1

REPORT INFORMATION
  Report Type: Report from Study
  Country: AU (occurrence: AU)
  Receive Date: 20140212
  Receipt Date: 20140328
  Transmission Date: 20141002
  Serious: Yes (Disabling, Other)
  Sender: FDA-Public Use
  Company Number: AU-BRISTOL-MYERS SQUIBB COMPANY-20138871

PATIENT
  Age: 74 Year
  Sex: Male

DRUGS (5)
  1. ORENCIA [Suspect]
     Indication: RHEUMATOID ARTHRITIS
     Route: 042
     Dates: start: 20090323
  2. OXYCONTIN [Concomitant]
  3. VOLTAREN [Concomitant]
  4. PANADOL [Concomitant]
  5. FISH OIL [Concomitant]

REACTIONS (1)
  - Eye ulcer [Unknown]
